FAERS Safety Report 17284624 (Version 1)
Quarter: 2020Q1

REPORT INFORMATION
  Report Type: Spontaneous
  Country: US (occurrence: US)
  Receive Date: 20200117
  Receipt Date: 20200117
  Transmission Date: 20200409
  Serious: Yes (Life-Threatening, Hospitalization)
  Sender: FDA-Public Use
  Company Number: US-B.I. PHARMACEUTICALS,INC./RIDGEFIELD-2020-BI-002682

PATIENT
  Sex: Female

DRUGS (1)
  1. JARDIANCE [Suspect]
     Active Substance: EMPAGLIFLOZIN
     Indication: TYPE 2 DIABETES MELLITUS
     Route: 048
     Dates: start: 20160331, end: 201902

REACTIONS (14)
  - Aortic stenosis [Unknown]
  - Pleural effusion [Unknown]
  - Troponin increased [Unknown]
  - Multiple organ dysfunction syndrome [Unknown]
  - Cardiac failure [Unknown]
  - Staphylococcal infection [Unknown]
  - Sepsis [Unknown]
  - Acute kidney injury [Unknown]
  - Confusional state [Unknown]
  - Hypoxia [Unknown]
  - Respiratory distress [Unknown]
  - Fournier^s gangrene [Unknown]
  - Septic shock [Unknown]
  - Oedema peripheral [Unknown]

NARRATIVE: CASE EVENT DATE: 20190122
